FAERS Safety Report 25831674 (Version 1)
Quarter: 2025Q3

REPORT INFORMATION
  Report Type: Spontaneous
  Country: US (occurrence: US)
  Receive Date: 20250922
  Receipt Date: 20250922
  Transmission Date: 20251020
  Serious: No
  Sender: PFIZER
  Company Number: US-PFIZER INC-202500184744

PATIENT
  Age: 22 Year
  Sex: Male

DRUGS (1)
  1. ETRASIMOD [Suspect]
     Active Substance: ETRASIMOD
     Indication: Colitis ulcerative
     Dates: start: 20250905, end: 20250906

REACTIONS (3)
  - Bundle branch block right [Unknown]
  - Bradycardia [Unknown]
  - Dizziness [Recovered/Resolved]

NARRATIVE: CASE EVENT DATE: 20250905
